FAERS Safety Report 10169111 (Version 2)
Quarter: 2014Q2

REPORT INFORMATION
  Report Type: Spontaneous
  Country: US (occurrence: US)
  Receive Date: 20140513
  Receipt Date: 20140513
  Transmission Date: 20141212
  Serious: No
  Sender: FDA-Public Use
  Company Number: US-DRREDDYS-USA/USA/13/0036334

PATIENT
  Age: 66 Year
  Sex: Female

DRUGS (3)
  1. FEXOFENADINE HYDROCHLORIDE AND PSEUDOEPHEDRINE HYDROCHLORIDE EXTENDED [Suspect]
     Indication: UPPER-AIRWAY COUGH SYNDROME
     Route: 048
     Dates: start: 20131211, end: 20131211
  2. CRESTOR [Concomitant]
     Indication: BLOOD CHOLESTEROL
     Route: 065
  3. LEVOTHYROXINE [Concomitant]
     Indication: THYROID DISORDER
     Route: 065

REACTIONS (3)
  - Insomnia [Recovering/Resolving]
  - Drug ineffective [Unknown]
  - Product quality issue [Unknown]
